FAERS Safety Report 18710336 (Version 1)
Quarter: 2021Q1

REPORT INFORMATION
  Report Type: Spontaneous
  Country: US (occurrence: US)
  Receive Date: 20210107
  Receipt Date: 20210107
  Transmission Date: 20210419
  Serious: Yes (Other)
  Sender: FDA-Public Use
  Company Number: US-ASTRAZENECA-2021A000203

PATIENT
  Sex: Male
  Weight: 85.3 kg

DRUGS (4)
  1. BENAZEPRIL [Concomitant]
     Active Substance: BENAZEPRIL HYDROCHLORIDE
     Dosage: DAILY
     Route: 048
     Dates: start: 2010
  2. LYNPARZA [Suspect]
     Active Substance: OLAPARIB
     Indication: PROSTATE CANCER
     Route: 048
     Dates: start: 202012
  3. RADIATION [Concomitant]
     Active Substance: RADIATION THERAPY
     Indication: PROSTATE CANCER
  4. METFORMIN [Concomitant]
     Active Substance: METFORMIN HYDROCHLORIDE
     Indication: DIABETES MELLITUS
     Dosage: TWO TIMES A DAY
     Route: 048
     Dates: start: 2010

REACTIONS (1)
  - Prostatic specific antigen increased [Unknown]
